FAERS Safety Report 10738986 (Version 1)
Quarter: 2015Q1

REPORT INFORMATION
  Report Type: Spontaneous
  Country: US (occurrence: US)
  Receive Date: 20150126
  Receipt Date: 20150126
  Transmission Date: 20150721
  Serious: No
  Sender: FDA-Public Use
  Company Number: US-GLAXOSMITHKLINE-US2015001545

PATIENT
  Sex: Female

DRUGS (1)
  1. NICORETTE [Suspect]
     Active Substance: NICOTINE
     Indication: APPETITE DISORDER
     Route: 002

REACTIONS (6)
  - Drug ineffective for unapproved indication [Unknown]
  - Euphoric mood [Unknown]
  - Throat irritation [Unknown]
  - Feeling drunk [Unknown]
  - Expired product administered [Unknown]
  - Drug administration error [Unknown]
